FAERS Safety Report 4365309-9 (Version None)
Quarter: 2004Q2

REPORT INFORMATION
  Report Type: 
  Country: None (occurrence: None)
  Receive Date: 20040525
  Receipt Date: 20040211
  Transmission Date: 20050107
  Serious: No
  Sender: FDA-Public Use
  Company Number: PHEH2004US01847

PATIENT
  Age: 13 Year
  Sex: Female

DRUGS (1)
  1. ZELNORM [Suspect]
     Dosage: 4 MG, BID

REACTIONS (1)
  - PAROSMIA [None]
